FAERS Safety Report 8240800-3 (Version None)
Quarter: 2012Q1

REPORT INFORMATION
  Report Type: 
  Country: None (occurrence: None)
  Receive Date: 20120328
  Receipt Date: 20120323
  Transmission Date: 20120608
  Serious: Yes (Hospitalization)
  Sender: FDA-Public Use
  Company Number: PHHY2011BR59270

PATIENT
  Sex: Female

DRUGS (2)
  1. DIOVAN [Suspect]
     Indication: HYPERTENSION
     Dosage: 3 DF (2 TABLETS IN MORNING, 1 TABLET AT NIGHT)
     Route: 048
  2. DIOVAN [Suspect]
     Dosage: 4 DF(FOR 2 IN THE MORNING AND 2 AT NIGHT)

REACTIONS (6)
  - NERVOUSNESS [None]
  - MYOCARDIAL INFARCTION [None]
  - FEELING ABNORMAL [None]
  - FALL [None]
  - MALAISE [None]
  - BLOOD PRESSURE INCREASED [None]
